FAERS Safety Report 18663313 (Version 1)
Quarter: 2020Q4

REPORT INFORMATION
  Report Type: Report from Study
  Country: US (occurrence: US)
  Receive Date: 20201224
  Receipt Date: 20201224
  Transmission Date: 20210114
  Serious: Yes (Hospitalization)
  Sender: FDA-Public Use
  Company Number: US-BAUSCH-BL-2020-038402

PATIENT
  Age: 67 Year
  Sex: Female

DRUGS (2)
  1. XIFAXAN [Suspect]
     Active Substance: RIFAXIMIN
     Indication: HEPATIC ENCEPHALOPATHY
     Route: 048
     Dates: end: 202008
  2. XIFAXAN [Suspect]
     Active Substance: RIFAXIMIN
     Dosage: RESUMED
     Route: 048
     Dates: start: 2020

REACTIONS (3)
  - Biopsy [Unknown]
  - Foot operation [Unknown]
  - Product dose omission issue [Unknown]

NARRATIVE: CASE EVENT DATE: 202008
